FAERS Safety Report 9692391 (Version 1)
Quarter: 2013Q4

REPORT INFORMATION
  Report Type: Spontaneous
  Country: US (occurrence: US)
  Receive Date: 20131118
  Receipt Date: 20131118
  Transmission Date: 20140711
  Serious: No
  Sender: FDA-Public Use
  Company Number: US-PFIZER INC-2013327363

PATIENT
  Age: 58 Year
  Sex: Male
  Weight: 82 kg

DRUGS (1)
  1. CELEBREX [Suspect]
     Indication: OSTEOARTHRITIS
     Dosage: 200 MG, DAILY
     Dates: start: 20131112

REACTIONS (1)
  - Hiccups [Recovering/Resolving]
